FAERS Safety Report 9789001 (Version 1)
Quarter: 2013Q4

REPORT INFORMATION
  Report Type: Spontaneous
  Country: FR (occurrence: FR)
  Receive Date: 20131230
  Receipt Date: 20131230
  Transmission Date: 20140711
  Serious: Yes (Death, Hospitalization)
  Sender: FDA-Public Use
  Company Number: FR-B.I. PHARMACEUTICALS,INC./RIDGEFIELD-2013-BI-43744FF

PATIENT
  Age: 86 Year
  Sex: Male

DRUGS (11)
  1. JOSIR [Suspect]
     Dates: end: 20131114
  2. XARELTO [Suspect]
     Dosage: 15 MG
     Route: 048
     Dates: start: 20130823, end: 20131005
  3. ZYLORIC [Suspect]
     Dosage: 300 MG
     Route: 048
     Dates: end: 20131114
  4. INEXIUM [Suspect]
     Dosage: 20 MG
     Route: 048
     Dates: end: 20131114
  5. SINGULAIR [Suspect]
     Dosage: 10 MG
     Route: 048
     Dates: end: 20131114
  6. LASILIX [Suspect]
     Dosage: 125 MG
     Route: 048
     Dates: end: 20131114
  7. INSPRA [Suspect]
     Dosage: 25 MG
     Route: 048
     Dates: end: 20131114
  8. PROZAC [Concomitant]
     Dosage: 20 MG
     Route: 048
  9. KARDEGIC [Concomitant]
     Dosage: 75 MG
     Route: 048
  10. PLAVIX [Concomitant]
  11. XANAX [Concomitant]
     Dosage: 0.25 MG

REACTIONS (4)
  - Lung infection [Fatal]
  - Drug reaction with eosinophilia and systemic symptoms [Not Recovered/Not Resolved]
  - Rash [Not Recovered/Not Resolved]
  - Eosinophilia [Recovered/Resolved]
